FAERS Safety Report 18202426 (Version 1)
Quarter: 2020Q3

REPORT INFORMATION
  Report Type: Spontaneous
  Country: US (occurrence: US)
  Receive Date: 20200827
  Receipt Date: 20200827
  Transmission Date: 20201103
  Serious: No
  Sender: FDA-Public Use
  Company Number: None

PATIENT

DRUGS (2)
  1. ANTICOAGULANT CITRATE DEXTROSE A ACD?A [Suspect]
     Active Substance: CITRIC ACID MONOHYDRATE\DEXTROSE MONOHYDRATE\SODIUM CITRATE
  2. ANTICOAGULANT SODIUM CITRATE SOLUTION [Suspect]
     Active Substance: TRISODIUM CITRATE DIHYDRATE

REACTIONS (1)
  - Product packaging confusion [None]
